FAERS Safety Report 4778454-0 (Version None)
Quarter: 2005Q3

REPORT INFORMATION
  Report Type: 
  Country: None (occurrence: None)
  Receive Date: 20050923
  Receipt Date: 20050923
  Transmission Date: 20060218
  Serious: Yes (Hospitalization)
  Sender: FDA-Public Use
  Company Number: None

PATIENT
  Age: 60 Year
  Weight: 141.0687 kg

DRUGS (1)
  1. DAPSONE [Suspect]
     Dosage: PO
     Route: 048

REACTIONS (2)
  - BRONCHITIS ACUTE [None]
  - METHAEMOGLOBINAEMIA [None]
